FAERS Safety Report 22636217 (Version 1)
Quarter: 2023Q2

REPORT INFORMATION
  Report Type: Spontaneous
  Country: US (occurrence: None)
  Receive Date: 20230621
  Receipt Date: 20230621
  Transmission Date: 20230721
  Serious: Yes (Hospitalization)
  Sender: FDA-Public Use
  Company Number: None

PATIENT
  Sex: Female

DRUGS (2)
  1. BOSULIF [Suspect]
     Active Substance: BOSUTINIB MONOHYDRATE
     Indication: Chronic myeloid leukaemia
     Dosage: TAKE 1 TABLET BY MOUTH DAILY (WITH BREAKFAST).?
     Route: 048
     Dates: start: 20230203
  2. MELATONIN [Concomitant]

REACTIONS (6)
  - Therapy interrupted [None]
  - Fatigue [None]
  - Nausea [None]
  - Pain [None]
  - Brain fog [None]
  - Arthralgia [None]
